FAERS Safety Report 7340228-4 (Version None)
Quarter: 2011Q1

REPORT INFORMATION
  Report Type: 
  Country: None (occurrence: None)
  Receive Date: 20110309
  Receipt Date: 20110303
  Transmission Date: 20110831
  Serious: Yes (Other)
  Sender: FDA-Public Use
  Company Number: IE-BRISTOL-MYERS SQUIBB COMPANY-15004997

PATIENT
  Age: 29 Year
  Sex: Female
  Weight: 61 kg

DRUGS (4)
  1. NORVIR [Suspect]
     Indication: HIV INFECTION
     Dosage: THERAPY ONGOING.
     Route: 048
     Dates: start: 20080909
  2. TRUVADA [Suspect]
     Indication: HIV INFECTION
     Dosage: 1 DF = 1 TABS. THERAPY ONGOING.
     Route: 048
     Dates: start: 20080909
  3. ATAZANAVIR [Suspect]
     Indication: HIV INFECTION
     Dosage: THERAPY ONGOING.
     Route: 048
     Dates: start: 20080909
  4. METHADONE [Concomitant]
     Route: 042

REACTIONS (3)
  - NORMAL NEWBORN [None]
  - CAESAREAN SECTION [None]
  - PREGNANCY [None]
